APPROVED DRUG PRODUCT: FERUMOXYTOL
Active Ingredient: FERUMOXYTOL
Strength: EQ 510MG IRON/17ML (EQ 30MG IRON/ML)
Dosage Form/Route: SOLUTION;INTRAVENOUS
Application: A206604 | Product #001 | TE Code: AB
Applicant: SANDOZ INC
Approved: Jan 15, 2021 | RLD: No | RS: No | Type: RX